FAERS Safety Report 10174440 (Version 1)
Quarter: 2014Q2

REPORT INFORMATION
  Report Type: Spontaneous
  Country: BR (occurrence: BR)
  Receive Date: 20140515
  Receipt Date: 20140515
  Transmission Date: 20141212
  Serious: Yes (Disabling, Other)
  Sender: FDA-Public Use
  Company Number: BR-ASTRAZENECA-2014SE31332

PATIENT
  Age: 7708 Day
  Sex: Female
  Weight: 64 kg

DRUGS (1)
  1. OMEPRAZOLE [Suspect]
     Indication: ABDOMINAL PAIN UPPER
     Route: 048
     Dates: start: 20140424

REACTIONS (6)
  - Dyspnoea [Unknown]
  - Eye oedema [Not Recovered/Not Resolved]
  - Generalised erythema [Recovering/Resolving]
  - Pruritus generalised [Recovering/Resolving]
  - Drug hypersensitivity [Unknown]
  - Headache [Unknown]
